FAERS Safety Report 9618333 (Version 2)
Quarter: 2013Q4

REPORT INFORMATION
  Report Type: Spontaneous
  Country: FR (occurrence: FR)
  Receive Date: 20131014
  Receipt Date: 20131018
  Transmission Date: 20140711
  Serious: Yes (Hospitalization)
  Sender: FDA-Public Use
  Company Number: FR-AMGEN-FRASP2013070386

PATIENT
  Age: 19 Year
  Sex: Female

DRUGS (4)
  1. MIMPARA [Suspect]
     Indication: HYPERPARATHYROIDISM SECONDARY
     Dosage: 30 MG, QD
     Route: 048
     Dates: start: 20130226
  2. RENVELA [Concomitant]
     Dosage: UNK 5 DOSES IN ONE DAY
     Dates: start: 20130226, end: 201308
  3. IMMUNOGLOBULIN                     /00025201/ [Concomitant]
     Dosage: 1 G/KG FOR 2 DAYS
     Route: 042
     Dates: start: 201308, end: 201308
  4. RENAGEL                            /01459901/ [Concomitant]
     Dosage: 5 DF, IN 1 DAY
     Route: 048
     Dates: start: 20130226

REACTIONS (2)
  - Thrombocytopenia [Recovered/Resolved]
  - Eosinophilia [Unknown]
